FAERS Safety Report 5528417-2 (Version None)
Quarter: 2007Q4

REPORT INFORMATION
  Report Type: 
  Country: None (occurrence: None)
  Receive Date: 20071121
  Receipt Date: 20071105
  Transmission Date: 20080405
  Serious: Yes (Death)
  Sender: FDA-Public Use
  Company Number: S07-FRA-05930-01

PATIENT
  Age: 73 Year
  Sex: Male

DRUGS (9)
  1. MEMANTINE HCL [Suspect]
     Indication: DEMENTIA ALZHEIMER'S TYPE
     Dosage: 5 MG QD PO
     Route: 048
     Dates: start: 20070904, end: 20071004
  2. AMIODARONE HCL [Concomitant]
  3. HYPERIUM (RILMENIDINE) [Concomitant]
  4. TRANDOLAPRIL [Concomitant]
  5. ARICEPT [Concomitant]
  6. PERMIXON (SERENOA REPENS) [Concomitant]
  7. OROCAL D3 (CALCIUM CARBONATE/COLECALCIFEROL) [Concomitant]
  8. ACETAMINOPHEN [Concomitant]
  9. CLONAZEPAM [Concomitant]

REACTIONS (8)
  - BLOOD CREATININE INCREASED [None]
  - C-REACTIVE PROTEIN INCREASED [None]
  - DISEASE COMPLICATION [None]
  - HYPERKALAEMIA [None]
  - HYPERNATRAEMIA [None]
  - INFECTION [None]
  - PEMPHIGOID [None]
  - STAPHYLOCOCCAL INFECTION [None]
